FAERS Safety Report 10593016 (Version 1)
Quarter: 2014Q4

REPORT INFORMATION
  Report Type: Spontaneous
  Country: US (occurrence: None)
  Receive Date: 20141118
  Receipt Date: 20141118
  Transmission Date: 20150529
  Serious: Yes (Other)
  Sender: FDA-Public Use
  Company Number: None

PATIENT
  Age: 49 Year
  Sex: Female
  Weight: 87.09 kg

DRUGS (1)
  1. TROPI/CYCLO/PHENY/TOBRA FLURB [Suspect]
     Active Substance: CYCLOPENTOLATE\FLURBIPROFEN\PHENYLEPHRINE\TOBRAMYCIN\TROPICAMIDE
     Indication: PREOPERATIVE CARE
     Dates: start: 20140530, end: 20140530

REACTIONS (4)
  - Eyelid oedema [None]
  - Vision blurred [None]
  - Eye pain [None]
  - Photophobia [None]

NARRATIVE: CASE EVENT DATE: 20140530
